FAERS Safety Report 18488372 (Version 2)
Quarter: 2020Q4

REPORT INFORMATION
  Report Type: Other
  Country: DE (occurrence: DE)
  Receive Date: 20201111
  Receipt Date: 20201202
  Transmission Date: 20210114
  Serious: Yes (Other)
  Sender: FDA-Public Use
  Company Number: DE-AJANTA PHARMA USA INC.-2095786

PATIENT
  Age: 76 Year
  Sex: Male

DRUGS (3)
  1. DAPAGLIFLOZIN. [Suspect]
     Active Substance: DAPAGLIFLOZIN
  2. SALBUTAMOL [Concomitant]
     Active Substance: ALBUTEROL
  3. METFORMIN (ANDA 213651) [Suspect]
     Active Substance: METFORMIN HYDROCHLORIDE
     Indication: TYPE 2 DIABETES MELLITUS

REACTIONS (2)
  - Lactic acidosis [Unknown]
  - Ketoacidosis [Unknown]
